FAERS Safety Report 14331440 (Version 5)
Quarter: 2018Q3

REPORT INFORMATION
  Report Type: Report from Study
  Country: US (occurrence: US)
  Receive Date: 20171228
  Receipt Date: 20180820
  Transmission Date: 20181010
  Serious: Yes (Hospitalization, Other)
  Sender: FDA-Public Use
  Company Number: US-ROCHE-2020625

PATIENT
  Age: 79 Year
  Sex: Male
  Weight: 81.2 kg

DRUGS (53)
  1. SULFAMETHOXAZOLE/TRIMETHOPRIM [Concomitant]
     Active Substance: SULFAMETHOXAZOLE\TRIMETHOPRIM
     Dosage: 800?150 MG
     Route: 065
  2. OXYBUTYNIN. [Concomitant]
     Active Substance: OXYBUTYNIN CHLORIDE
     Route: 065
  3. ATORVASTATIN [Concomitant]
     Active Substance: ATORVASTATIN
     Dosage: BEDTIME
     Route: 048
  4. METOPROLOLTARTRAT [Concomitant]
     Dosage: IMMEDIATE RELEASE
     Route: 065
  5. HYDROMORPHONE [Concomitant]
     Active Substance: HYDROMORPHONE
     Dosage: 1?2 TABS
     Route: 065
  6. DOCUSATE SODIUM. [Concomitant]
     Active Substance: DOCUSATE SODIUM
     Route: 048
  7. ALBUTEROL/IPRATROPIUM [Concomitant]
     Active Substance: ALBUTEROL\IPRATROPIUM
     Dosage: INHALATION AEROSOL?20 MCG?100 MCG 1 PUFF
     Route: 048
  8. MIRALAX [Concomitant]
     Active Substance: POLYETHYLENE GLYCOL 3350
     Dosage: AS NEEDED?POWDER FOR RECONSTITUTION 1 DOSE
     Route: 048
  9. POLYETHYLENE GLYCOL 3350. [Concomitant]
     Active Substance: POLYETHYLENE GLYCOL 3350
     Route: 048
  10. ACLOVATE [Concomitant]
     Active Substance: ALCLOMETASONE DIPROPIONATE
     Route: 065
  11. DOCUSATE SODIUM. [Concomitant]
     Active Substance: DOCUSATE SODIUM
     Route: 065
  12. OXYCODONE [Concomitant]
     Active Substance: OXYCODONE
     Dosage: C?II
     Route: 065
  13. COBIMETINIB. [Suspect]
     Active Substance: COBIMETINIB
     Indication: ROSAI-DORFMAN SYNDROME
     Route: 048
     Dates: start: 20170224
  14. COBIMETINIB. [Suspect]
     Active Substance: COBIMETINIB
     Route: 048
     Dates: start: 20170616, end: 20180719
  15. SENNA [Concomitant]
     Active Substance: SENNA LEAF\SENNOSIDES\SENNOSIDES A AND B
     Dosage: 2 TABLETS
     Route: 048
  16. TAMSULOSIN [Concomitant]
     Active Substance: TAMSULOSIN
     Route: 065
  17. FERROUS SULFATE. [Concomitant]
     Active Substance: FERROUS SULFATE
     Dosage: 65 MG ELEMENTAL IRON
     Route: 065
  18. COD LIVER OIL [Concomitant]
     Active Substance: COD LIVER OIL
     Dosage: UNKNOWN
     Route: 065
  19. LIDOCAINE. [Concomitant]
     Active Substance: LIDOCAINE
     Dosage: AS NEEDED
     Route: 061
  20. MEROPENEM. [Concomitant]
     Active Substance: MEROPENEM
     Route: 042
  21. FUROSEMIDE. [Concomitant]
     Active Substance: FUROSEMIDE
     Route: 065
  22. OXYCONTIN [Concomitant]
     Active Substance: OXYCODONE HYDROCHLORIDE
     Route: 065
  23. RANITIDINE HYDROCHLORIDE. [Concomitant]
     Active Substance: RANITIDINE HYDROCHLORIDE
     Route: 065
  24. FERROUS SULFATE. [Concomitant]
     Active Substance: FERROUS SULFATE
     Route: 065
  25. METOPROLOLTARTRAT [Concomitant]
     Route: 065
  26. CLOPIDOGREL [Concomitant]
     Active Substance: CLOPIDOGREL BISULFATE
     Route: 065
  27. GAS?X [Concomitant]
     Active Substance: DIMETHICONE
  28. KLOR?CON M20 [Concomitant]
     Active Substance: POTASSIUM CHLORIDE
     Route: 048
  29. ASPIRIN. [Concomitant]
     Active Substance: ASPIRIN
     Route: 065
  30. CEFTRIAXONE. [Concomitant]
     Active Substance: CEFTRIAXONE
     Route: 042
  31. NALOXEGOL [Concomitant]
     Active Substance: NALOXEGOL
     Route: 065
  32. DIPHENHYDRAMIN [Concomitant]
     Active Substance: DIPHENHYDRAMINE
     Dosage: ONCE
     Route: 065
  33. ALFUZOSIN [Concomitant]
     Active Substance: ALFUZOSIN
     Route: 065
  34. PROTONIX (UNK INGREDIENTS) [Concomitant]
     Dosage: 2?TABS
     Route: 048
  35. MIDODRINE [Concomitant]
     Active Substance: MIDODRINE
     Route: 048
  36. PANTOPRAZOLE [Concomitant]
     Active Substance: PANTOPRAZOLE
     Route: 048
  37. SIMETHICONE (DIMETHICONE) [Concomitant]
     Active Substance: DIMETHICONE
     Dosage: EVERY 8 HOURS AS NEEDED
     Route: 048
  38. ARANESP [Concomitant]
     Active Substance: DARBEPOETIN ALFA
     Dosage: 200 MCG/ML
     Route: 065
  39. CELECOXIB. [Concomitant]
     Active Substance: CELECOXIB
     Route: 065
  40. DOCUSATE SODIUM. [Concomitant]
     Active Substance: DOCUSATE SODIUM
     Route: 048
  41. OXYCONTIN [Concomitant]
     Active Substance: OXYCODONE HYDROCHLORIDE
     Route: 065
  42. SYSTANE (UNITED STATES) [Concomitant]
     Route: 047
  43. VITAMIN B COMPLEX [Concomitant]
     Active Substance: CYANOCOBALAMIN\DEXPANTHENOL\NIACINAMIDE\PYRIDOXINE HYDROCHLORIDE\RIBOFLAVIN 5^-PHOSPHATE SODIUM\THIAMINE HYDROCHLORIDE\VITAMIN B COMPLEX
  44. FUROSEMIDE. [Concomitant]
     Active Substance: FUROSEMIDE
     Route: 065
  45. METHADONE [Concomitant]
     Active Substance: METHADONE HYDROCHLORIDE
     Dosage: C?II
     Route: 048
  46. ACETAMINOPHEN. [Concomitant]
     Active Substance: ACETAMINOPHEN
     Dosage: 3 TABLETS EVERY 8 HOURS
     Route: 065
  47. ENOXAPARIN SODIUM. [Concomitant]
     Active Substance: ENOXAPARIN SODIUM
     Route: 058
  48. PREGABALIN. [Concomitant]
     Active Substance: PREGABALIN
     Route: 065
  49. COENZYME Q?10 [Concomitant]
     Dosage: UNKNOWN
     Route: 065
  50. METHADONE [Concomitant]
     Active Substance: METHADONE HYDROCHLORIDE
     Route: 065
  51. OXYCODONE [Concomitant]
     Active Substance: OXYCODONE
     Dosage: TABLET 1 TO 3 EVERY 3 HOURS AS NEEDED
     Route: 065
  52. SIMETHICONE (DIMETHICONE) [Concomitant]
     Active Substance: DIMETHICONE
     Dosage: AS NEEDED
     Route: 065
  53. RANITIDINE. [Concomitant]
     Active Substance: RANITIDINE
     Dosage: 2 TABLETS AT BETIME
     Route: 048

REACTIONS (16)
  - Pain [Unknown]
  - Infection [Unknown]
  - Nausea [Unknown]
  - Dyspnoea [Unknown]
  - Hypotension [Unknown]
  - Myelodysplastic syndrome [Unknown]
  - Urinary tract infection [Unknown]
  - Pyrexia [Unknown]
  - Bacteraemia [Unknown]
  - Asthenia [Unknown]
  - Escherichia sepsis [Unknown]
  - Abdominal pain [Unknown]
  - Myocardial infarction [Unknown]
  - Myocardial ischaemia [Unknown]
  - Systemic infection [Unknown]
  - Constipation [Unknown]

NARRATIVE: CASE EVENT DATE: 20171004
